FAERS Safety Report 7957632-3 (Version None)
Quarter: 2011Q4

REPORT INFORMATION
  Report Type: 
  Country: None (occurrence: None)
  Receive Date: 20111205
  Receipt Date: 20111122
  Transmission Date: 20120403
  Serious: Yes (Other)
  Sender: FDA-Public Use
  Company Number: PHFR2011GB006745

PATIENT
  Sex: Female

DRUGS (2)
  1. TEGRETOL [Suspect]
     Indication: TEMPORAL LOBE EPILEPSY
  2. CALCIN [Concomitant]

REACTIONS (2)
  - MIGRAINE [None]
  - DEJA VU [None]
